FAERS Safety Report 15170464 (Version 1)
Quarter: 2018Q3

REPORT INFORMATION
  Report Type: Other
  Country: US (occurrence: US)
  Receive Date: 20180720
  Receipt Date: 20180720
  Transmission Date: 20181010
  Serious: Yes (Other)
  Sender: FDA-Public Use
  Company Number: US-MSN LABORATORIES PRIVATE LIMITED-2052451

PATIENT
  Sex: Male

DRUGS (2)
  1. CAPECITABINE. [Suspect]
     Active Substance: CAPECITABINE
     Indication: RECTAL ADENOCARCINOMA
     Route: 065
  2. XELOX (CAPECITABINE PLUS OXALIPLATIN) [Suspect]
     Active Substance: CAPECITABINE\OXALIPLATIN
     Route: 065

REACTIONS (2)
  - Diarrhoea [Unknown]
  - Balanoposthitis [Unknown]
